FAERS Safety Report 5889951-9 (Version None)
Quarter: 2008Q3

REPORT INFORMATION
  Report Type: 
  Country: None (occurrence: None)
  Receive Date: 20080919
  Receipt Date: 20080912
  Transmission Date: 20090109
  Serious: Yes (Other)
  Sender: FDA-Public Use
  Company Number: NL-SANOFI-SYNTHELABO-A01200810694

PATIENT
  Age: 59 Year
  Sex: Female

DRUGS (2)
  1. AVASTIN [Suspect]
     Dosage: UNK
     Route: 065
     Dates: start: 20080801, end: 20080801
  2. OXALIPLATIN [Suspect]
     Indication: COLON CANCER
     Dosage: UNK
     Route: 042
     Dates: start: 20080801, end: 20080801

REACTIONS (1)
  - TRANSIENT ISCHAEMIC ATTACK [None]
